FAERS Safety Report 4655188-4 (Version None)
Quarter: 2005Q2

REPORT INFORMATION
  Report Type: 
  Country: None (occurrence: None)
  Receive Date: 20050506
  Receipt Date: 20050503
  Transmission Date: 20051028
  Serious: Yes (Other)
  Sender: FDA-Public Use
  Company Number: US-GLAXOSMITHKLINE-A0557107A

PATIENT
  Age: 48 Year
  Sex: Female

DRUGS (3)
  1. WELLBUTRIN [Suspect]
     Indication: DEPRESSION
     Dosage: 150MG PER DAY
     Route: 048
     Dates: start: 20050429, end: 20050429
  2. ZOLOFT [Concomitant]
  3. PROZAC [Concomitant]

REACTIONS (3)
  - FLIGHT OF IDEAS [None]
  - HALLUCINATION, AUDITORY [None]
  - PHARMACEUTICAL PRODUCT COMPLAINT [None]
